FAERS Safety Report 15581276 (Version 12)
Quarter: 2020Q2

REPORT INFORMATION
  Report Type: Spontaneous
  Country: JP (occurrence: JP)
  Receive Date: 20181105
  Receipt Date: 20200515
  Transmission Date: 20200713
  Serious: Yes (Death, Hospitalization)
  Sender: FDA-Public Use
  Company Number: JP-AMGEN-JPNSP2018155481

PATIENT
  Age: 68 Year
  Sex: Female
  Weight: 49 kg

DRUGS (9)
  1. BAYASPIRIN [Concomitant]
     Active Substance: ASPIRIN
     Indication: ARTERIAL BYPASS OPERATION
     Dosage: 100 MG
     Route: 048
     Dates: start: 20160714, end: 20181030
  2. THYRADIN S [Concomitant]
     Active Substance: LEVOTHYROXINE SODIUM
     Indication: HYPOTHYROIDISM
     Dosage: 100 MG
     Route: 048
     Dates: start: 20180823, end: 20181030
  3. THYRADIN S [Concomitant]
     Active Substance: LEVOTHYROXINE SODIUM
     Indication: HYPOTHYROIDISM
  4. NOVORAPID [Concomitant]
     Active Substance: INSULIN ASPART
     Indication: DIABETES MELLITUS
     Dosage: 11 UNK
     Route: 058
     Dates: start: 20080503, end: 20181030
  5. TAKECAB [Concomitant]
     Active Substance: VONOPRAZAN FUMARATE
     Indication: CHRONIC GASTRITIS
     Dosage: 20 MG
     Route: 048
     Dates: start: 20180623, end: 20181030
  6. MIRCERA [Concomitant]
     Active Substance: METHOXY POLYETHYLENE GLYCOL-EPOETIN BETA
     Dosage: 200 UG
     Route: 065
     Dates: end: 20180918
  7. ROSUVASTATIN. [Concomitant]
     Active Substance: ROSUVASTATIN
     Indication: DYSLIPIDAEMIA
     Dosage: 5 MG
     Route: 048
     Dates: start: 20180623, end: 20181030
  8. PARSABIV [Suspect]
     Active Substance: ETELCALCETIDE HYDROCHLORIDE
     Indication: HYPERPARATHYROIDISM SECONDARY
     Dosage: 5 MILLIGRAM, 3 TIMES/WK
     Route: 010
     Dates: start: 20180823
  9. OXAROL [Suspect]
     Active Substance: MAXACALCITOL
     Indication: HYPERPARATHYROIDISM SECONDARY
     Dosage: 2.5 UG, QW
     Route: 065
     Dates: start: 20180814

REACTIONS (2)
  - Shunt malfunction [Recovered/Resolved with Sequelae]
  - General physical health deterioration [Fatal]

NARRATIVE: CASE EVENT DATE: 20180913
